FAERS Safety Report 9286070 (Version 1)
Quarter: 2013Q2

REPORT INFORMATION
  Report Type: Spontaneous
  Country: US (occurrence: None)
  Receive Date: 20130510
  Receipt Date: 20130510
  Transmission Date: 20140414
  Serious: Yes (Other)
  Sender: FDA-Public Use
  Company Number: None

PATIENT
  Age: 55 Year
  Sex: Female

DRUGS (5)
  1. FENTANYL [Suspect]
     Dates: start: 20130419, end: 20130509
  2. FENTANYL [Suspect]
  3. OXYCODONE [Concomitant]
  4. GENERIC FOR PERCOCET [Concomitant]
  5. GENERIC FOR HYDROCODONE [Concomitant]

REACTIONS (5)
  - Local swelling [None]
  - Joint swelling [None]
  - Pruritus [None]
  - Feeling abnormal [None]
  - Oedema peripheral [None]
